FAERS Safety Report 5524415-3 (Version None)
Quarter: 2007Q4

REPORT INFORMATION
  Report Type: 
  Country: None (occurrence: None)
  Receive Date: 20071121
  Receipt Date: 20071115
  Transmission Date: 20080405
  Serious: Yes (Death, Life-Threatening)
  Sender: FDA-Public Use
  Company Number: MX-PFIZER INC-2007096868

PATIENT
  Sex: Male

DRUGS (4)
  1. LINEZOLID [Suspect]
     Indication: PNEUMONIA
     Dosage: DAILY DOSE:600MG
     Route: 042
  2. CEFTAZIDIME [Suspect]
     Indication: PNEUMONIA
     Dosage: DAILY DOSE:500MG
     Route: 042
     Dates: start: 20060517, end: 20060522
  3. PHENYTOIN [Concomitant]
  4. IRBESARTAN [Concomitant]

REACTIONS (2)
  - DEATH [None]
  - HYPONATRAEMIA [None]
